FAERS Safety Report 25454762 (Version 1)
Quarter: 2025Q2

REPORT INFORMATION
  Report Type: Spontaneous
  Country: US (occurrence: US)
  Receive Date: 20250619
  Receipt Date: 20250619
  Transmission Date: 20250717
  Serious: No
  Sender: ROCHE
  Company Number: US-ROCHE-10000312205

PATIENT
  Sex: Male

DRUGS (1)
  1. ALECENSA [Suspect]
     Active Substance: ALECTINIB HYDROCHLORIDE
     Indication: Multiple sclerosis
     Route: 048
     Dates: start: 202311

REACTIONS (4)
  - Off label use [Unknown]
  - Hypoaesthesia [Unknown]
  - Paraesthesia [Unknown]
  - Limb discomfort [Unknown]
